FAERS Safety Report 7298815 (Version 2)
Quarter: 2012Q4

REPORT INFORMATION
  Report Type: 
  Country: FR (occurrence: FR)
  Receive Date: 20100226
  Receipt Date: 20121226
  Transmission Date: 20130627
  Serious: Yes (Life-Threatening)
  Sender: FDA-Public Use
  Company Number: FR-ASTRAZENECA-2010SE07528

PATIENT
  Age: 28889 Day
  Sex: Female

DRUGS (4)
  1. XYLOCAINE [Suspect]
     Indication: ANAESTHESIA
     Dosage: 10 mg/mL
     Route: 065
     Dates: start: 20091230, end: 20091230
  2. ULTIVA [Suspect]
     Indication: ANAESTHESIA
     Route: 065
     Dates: start: 20091230, end: 20091230
  3. PROPOFOL FRESENIUS [Suspect]
     Indication: ANAESTHESIA
     Route: 065
     Dates: start: 20091230, end: 20091230
  4. SEVORANE [Suspect]
     Indication: ANAESTHESIA
     Route: 055
     Dates: start: 20091230, end: 20091230

REACTIONS (2)
  - Bronchospasm [Recovered/Resolved]
  - Hypotension [Recovered/Resolved]
